APPROVED DRUG PRODUCT: VANCOMYCIN HYDROCHLORIDE
Active Ingredient: VANCOMYCIN HYDROCHLORIDE
Strength: EQ 1.5GM BASE/VIAL
Dosage Form/Route: POWDER;INTRAVENOUS
Application: A217401 | Product #002 | TE Code: AP
Applicant: EUGIA PHARMA SPECIALITIES LTD
Approved: Aug 4, 2023 | RLD: No | RS: No | Type: RX